FAERS Safety Report 6957453-4 (Version None)
Quarter: 2010Q3

REPORT INFORMATION
  Report Type: 
  Country: None (occurrence: None)
  Receive Date: 20100826
  Receipt Date: 20100817
  Transmission Date: 20110219
  Serious: Yes (Hospitalization, Other)
  Sender: FDA-Public Use
  Company Number: 2010US002972

PATIENT
  Age: 57 Year
  Sex: Male
  Weight: 101 kg

DRUGS (10)
  1. PROGRAF [Suspect]
     Indication: RENAL TRANSPLANT
     Dosage: 4 MG, BID, ORAL
     Route: 048
     Dates: start: 20100705
  2. SOLU-MEDROL [Suspect]
     Indication: PRODUCT USED FOR UNKNOWN INDICATION
     Dosage: 1 G, UID/QD
     Dates: start: 20100710, end: 20100701
  3. PREDNISONE [Suspect]
     Indication: RENAL TRANSPLANT
     Dosage: 5 MG, UID/QD, ORAL
     Route: 048
  4. ASPIRIN [Concomitant]
  5. MULTIVITAMIN [Concomitant]
  6. FLUCONAZOLE [Concomitant]
  7. NEXIUM [Concomitant]
  8. CELLCEPT [Concomitant]
  9. VALCYTE [Concomitant]
  10. CLONIDINE [Concomitant]

REACTIONS (2)
  - COMPLICATIONS OF TRANSPLANTED KIDNEY [None]
  - MYOPATHY [None]
